FAERS Safety Report 4309640-1 (Version None)
Quarter: 2004Q1

REPORT INFORMATION
  Report Type: 
  Country: None (occurrence: None)
  Receive Date: 20040301
  Receipt Date: 20040217
  Transmission Date: 20041129
  Serious: Yes (Hospitalization)
  Sender: FDA-Public Use
  Company Number: US067479 FRWYE588717FEB04

PATIENT
  Age: 60 Year
  Sex: Female

DRUGS (7)
  1. ENBREL [Suspect]
     Indication: RHEUMATOID ARTHRITIS
     Dosage: SC
     Route: 058
     Dates: start: 20010101, end: 20030801
  2. CALCIUM CARBONATE [Concomitant]
  3. OMEPRAZOLE [Concomitant]
  4. ZOLPIDEM TARTRATE [Concomitant]
  5. RAMIPRIL [Concomitant]
  6. BELLADONNA [Concomitant]
  7. LACIDIPINE [Concomitant]

REACTIONS (2)
  - ALOPECIA [None]
  - SYSTEMIC LUPUS ERYTHEMATOSUS [None]
